FAERS Safety Report 12980299 (Version 3)
Quarter: 2017Q2

REPORT INFORMATION
  Report Type: Spontaneous
  Country: US (occurrence: US)
  Receive Date: 20161128
  Receipt Date: 20170612
  Transmission Date: 20170830
  Serious: No
  Sender: FDA-Public Use
  Company Number: US-SEPTODONT-201603435

PATIENT
  Age: 62 Year
  Sex: Male

DRUGS (3)
  1. SEPTOCAINE AND EPINEPHRINE [Suspect]
     Active Substance: ARTICAINE HYDROCHLORIDE\EPINEPHRINE BITARTRATE
     Indication: LOCAL ANAESTHESIA
     Dosage: 1ST ADMINISTERED TO BLOCK IA WITH AKINOSI APPROACH, 2ND PSA/MSA/BUCCAL INFILTRATION
     Route: 004
     Dates: start: 20160610, end: 20160610
  2. LIDOCAINE HYDROCHLORIDE 2% WITH EPINEPHRINE 1:100,000 INJECTION [Suspect]
     Active Substance: EPINEPHRINE\LIDOCAINE HYDROCHLORIDE
     Indication: LOCAL ANAESTHESIA
     Dosage: TRADITIONAL IAB
     Route: 004
     Dates: start: 20160610, end: 20160610
  3. CITANEST PLAIN [Suspect]
     Active Substance: PRILOCAINE HYDROCHLORIDE
     Indication: LOCAL ANAESTHESIA
     Dosage: BUCCAL AND PDL INFILTRATIONS ALL AROUND
     Route: 004
     Dates: start: 20160610, end: 20160610

REACTIONS (2)
  - Accidental exposure to product [Recovered/Resolved]
  - Aphonia [Recovered/Resolved]

NARRATIVE: CASE EVENT DATE: 20160610
